FAERS Safety Report 5469538-2 (Version None)
Quarter: 2007Q3

REPORT INFORMATION
  Report Type: 
  Country: None (occurrence: None)
  Receive Date: 20070927
  Receipt Date: 20070925
  Transmission Date: 20080115
  Serious: Yes (Hospitalization)
  Sender: FDA-Public Use
  Company Number: B0488416A

PATIENT
  Age: 68 Year
  Sex: Male

DRUGS (6)
  1. PAXIL [Suspect]
     Indication: DEPRESSION
     Dosage: 10MG PER DAY
     Route: 048
     Dates: start: 20070907, end: 20070908
  2. TETRAMIDE [Concomitant]
     Dosage: 10MG PER DAY
     Route: 048
     Dates: start: 20070907
  3. MICARDIS [Concomitant]
     Dosage: 20MG PER DAY
     Route: 048
  4. LENDORMIN [Concomitant]
     Dosage: .25MG PER DAY
     Route: 048
     Dates: start: 20070907
  5. ZOLPIDEM [Concomitant]
     Dosage: 5MG PER DAY
     Route: 048
  6. NOVORAPID [Concomitant]

REACTIONS (5)
  - ABASIA [None]
  - MUSCULAR WEAKNESS [None]
  - MYALGIA [None]
  - RHABDOMYOLYSIS [None]
  - SUBDURAL HAEMATOMA [None]
